FAERS Safety Report 9883131 (Version 3)
Quarter: 2014Q2

REPORT INFORMATION
  Report Type: Report from Study
  Country: US (occurrence: US)
  Receive Date: 20140208
  Receipt Date: 20140509
  Transmission Date: 20141212
  Serious: Yes (Other)
  Sender: FDA-Public Use
  Company Number: US-ABBVIE-14P-163-1196057-00

PATIENT
  Age: 53 Year
  Sex: Female
  Weight: 71.73 kg

DRUGS (8)
  1. HUMIRA [Suspect]
     Indication: CROHN^S DISEASE
     Route: 058
     Dates: start: 20130724
  2. LAMICTAL [Concomitant]
     Indication: BIPOLAR DISORDER
  3. ABILIFY [Concomitant]
     Indication: BIPOLAR DISORDER
  4. LEVOTHYROXINE [Concomitant]
     Indication: HYPOTHYROIDISM
  5. OMEPRAZOLE [Concomitant]
     Indication: GASTRIC DISORDER
  6. RITALIN [Concomitant]
     Indication: ATTENTION DEFICIT/HYPERACTIVITY DISORDER
  7. MORPHINE [Concomitant]
     Indication: BACK PAIN
     Route: 048
  8. METHADONE [Concomitant]
     Indication: PAIN

REACTIONS (10)
  - Dysstasia [Recovered/Resolved]
  - Cholelithiasis [Recovered/Resolved]
  - Crohn^s disease [Unknown]
  - Back pain [Recovering/Resolving]
  - Breakthrough pain [Recovering/Resolving]
  - Abdominal pain [Recovered/Resolved]
  - Back pain [Recovered/Resolved]
  - Nausea [Unknown]
  - Vomiting [Unknown]
  - Pain in extremity [Unknown]
